FAERS Safety Report 4902030-X (Version None)
Quarter: 2006Q1

REPORT INFORMATION
  Report Type: 
  Country: None (occurrence: None)
  Receive Date: 20060202
  Receipt Date: 20060202
  Transmission Date: 20060701
  Serious: Yes (Death, Hospitalization)
  Sender: FDA-Public Use
  Company Number: None

PATIENT
  Age: 60 Year
  Sex: Male
  Weight: 79.3795 kg

DRUGS (2)
  1. RISPERDAL [Suspect]
  2. ZYPREXA [Suspect]

REACTIONS (4)
  - AGGRESSION [None]
  - DEPRESSED LEVEL OF CONSCIOUSNESS [None]
  - HYPNAGOGIC HALLUCINATION [None]
  - UNEVALUABLE EVENT [None]
